FAERS Safety Report 7339356-9 (Version None)
Quarter: 2011Q1

REPORT INFORMATION
  Report Type: 
  Country: None (occurrence: None)
  Receive Date: 20110308
  Receipt Date: 20110303
  Transmission Date: 20110831
  Serious: Yes (Hospitalization)
  Sender: FDA-Public Use
  Company Number: JP-B.I. PHARMACEUTICALS,INC./RIDGEFIELD-2011-BP-02406NB

PATIENT
  Sex: Male

DRUGS (3)
  1. BUFFERIN [Concomitant]
  2. WARFARIN [Concomitant]
  3. MICARDIS [Suspect]
     Dosage: 40 MG

REACTIONS (1)
  - PNEUMONIA [None]
